FAERS Safety Report 14890846 (Version 1)
Quarter: 2018Q2

REPORT INFORMATION
  Report Type: Spontaneous
  Country: US (occurrence: US)
  Receive Date: 20180514
  Receipt Date: 20180514
  Transmission Date: 20180711
  Serious: No
  Sender: FDA-Public Use
  Company Number: US-UNITED THERAPEUTICS-UNT-2018-002391

PATIENT
  Age: 55 Year
  Sex: Female
  Weight: 95.24 kg

DRUGS (3)
  1. REMODULIN [Suspect]
     Active Substance: TREPROSTINIL
     Dosage: 0.5 ML/HR
     Route: 058
  2. REMODULIN [Suspect]
     Active Substance: TREPROSTINIL
     Indication: PULMONARY ARTERIAL HYPERTENSION
     Dosage: 0.091 ?G/KG, CONTINUING
     Route: 058
     Dates: start: 20170228
  3. OPSUMIT [Concomitant]
     Active Substance: MACITENTAN
     Indication: PRODUCT USED FOR UNKNOWN INDICATION
     Route: 065

REACTIONS (8)
  - Flushing [Recovering/Resolving]
  - Dyspepsia [Recovering/Resolving]
  - Vomiting [Recovering/Resolving]
  - Diarrhoea [Recovering/Resolving]
  - Device dislocation [Recovered/Resolved]
  - Influenza [Recovering/Resolving]
  - Nausea [Recovering/Resolving]
  - Retching [Recovering/Resolving]

NARRATIVE: CASE EVENT DATE: 201802
